FAERS Safety Report 7784753-0 (Version None)
Quarter: 2011Q3

REPORT INFORMATION
  Report Type: 
  Country: None (occurrence: None)
  Receive Date: 20110928
  Receipt Date: 20110921
  Transmission Date: 20111222
  Serious: Yes (Other)
  Sender: FDA-Public Use
  Company Number: DE-AMGEN-DEUSP2011046206

PATIENT
  Age: 84 Year
  Sex: Female

DRUGS (4)
  1. RAMIPRIL [Concomitant]
  2. CALCILAC [Concomitant]
  3. ARCOXIA [Concomitant]
  4. PROLIA [Suspect]
     Indication: OSTEOPOROSIS
     Dosage: 60 MG, UNK
     Route: 058
     Dates: start: 20101116

REACTIONS (10)
  - ERYTHEMA [None]
  - FEELING ABNORMAL [None]
  - ASTHENIA [None]
  - EATING DISORDER [None]
  - HYPOPHAGIA [None]
  - SHOCK [None]
  - DECREASED APPETITE [None]
  - BALANCE DISORDER [None]
  - WEIGHT DECREASED [None]
  - DYSSTASIA [None]
